FAERS Safety Report 4315309-X (Version None)
Quarter: 2004Q1

REPORT INFORMATION
  Report Type: 
  Country: None (occurrence: None)
  Receive Date: 20040311
  Receipt Date: 20040304
  Transmission Date: 20041129
  Serious: Yes (Hospitalization)
  Sender: FDA-Public Use
  Company Number: 200411747US

PATIENT
  Age: 91 Year
  Sex: Female

DRUGS (2)
  1. AMARYL [Suspect]
     Dosage: DOSE: UNK
     Route: 048
  2. GLUCOTROL XL [Concomitant]
     Dosage: DOSE: UNK

REACTIONS (2)
  - BLOOD GLUCOSE DECREASED [None]
  - PANCREATITIS ACUTE [None]
